FAERS Safety Report 7426329-0 (Version None)
Quarter: 2011Q2

REPORT INFORMATION
  Report Type: 
  Country: None (occurrence: None)
  Receive Date: 20110420
  Receipt Date: 20110412
  Transmission Date: 20111010
  Serious: Yes (Death)
  Sender: FDA-Public Use
  Company Number: B0713249A

PATIENT
  Sex: Female
  Weight: 14 kg

DRUGS (33)
  1. THIOTEPA [Suspect]
     Dosage: 120MGM2 PER DAY
     Route: 042
     Dates: start: 20071128, end: 20071129
  2. VITAMEDIN [Concomitant]
     Dosage: 1IUAX PER DAY
     Route: 042
     Dates: start: 20071128, end: 20071204
  3. SIMPLE SYRUP [Concomitant]
     Route: 048
     Dates: end: 20080115
  4. FUROSEMIDE [Concomitant]
     Route: 048
     Dates: end: 20080115
  5. FUROSEMIDE [Concomitant]
     Route: 042
     Dates: start: 20071121, end: 20071124
  6. CONIEL [Concomitant]
     Route: 048
     Dates: start: 20071101, end: 20071231
  7. XYLOCAINE [Concomitant]
     Route: 048
     Dates: start: 20071129, end: 20071129
  8. ALKERAN [Suspect]
     Dosage: 30MGM2 PER DAY
     Route: 042
     Dates: start: 20071128, end: 20071129
  9. FUROSEMIDE [Concomitant]
     Route: 042
     Dates: start: 20071128, end: 20071205
  10. ISOTONIC SODIUM CHLORIDE SOLUTION [Concomitant]
     Route: 042
     Dates: start: 20071128, end: 20071129
  11. URSO 250 [Concomitant]
     Route: 048
     Dates: start: 20071121, end: 20080109
  12. FUNGUARD [Concomitant]
     Dosage: 1IUAX PER DAY
     Route: 042
     Dates: start: 20071128, end: 20071213
  13. MEROPENEM [Concomitant]
     Route: 042
     Dates: start: 20071129, end: 20071213
  14. BAKTAR [Concomitant]
     Route: 048
     Dates: start: 20071128, end: 20071129
  15. ALKERAN [Suspect]
     Indication: STEM CELL TRANSPLANT
     Dosage: 30MGM2 PER DAY
     Route: 042
     Dates: start: 20071121, end: 20071122
  16. HEPARIN [Concomitant]
     Route: 042
     Dates: start: 20071120, end: 20080104
  17. GLUCOSE [Concomitant]
     Route: 042
     Dates: start: 20071125, end: 20071130
  18. POLARAMINE [Concomitant]
     Route: 042
     Dates: start: 20071129, end: 20071129
  19. ZOFRAN [Concomitant]
     Dosage: 2IUAX PER DAY
     Route: 042
     Dates: start: 20071128, end: 20071201
  20. ISOTONIC SODIUM CHLORIDE SOLUTION [Concomitant]
     Route: 042
     Dates: start: 20071121, end: 20071122
  21. SOLDEM [Concomitant]
     Dosage: 1IUAX PER DAY
     Route: 042
     Dates: start: 20071121, end: 20071122
  22. WHITE SOFT PARAFFIN [Concomitant]
     Route: 061
     Dates: start: 20071129, end: 20071129
  23. SOLDEM [Concomitant]
     Dosage: 1IUAX PER DAY
     Route: 042
     Dates: start: 20071128, end: 20071129
  24. FLUMARIN [Concomitant]
     Route: 042
     Dates: start: 20071128, end: 20071129
  25. MINOMYCIN [Concomitant]
     Route: 042
     Dates: start: 20071129, end: 20071202
  26. PENTAZOCINE LACTATE [Concomitant]
     Route: 042
     Dates: start: 20071129, end: 20071201
  27. LOPEMIN [Concomitant]
     Route: 048
     Dates: start: 20071127, end: 20071211
  28. HACHIAZULE [Concomitant]
     Route: 002
     Dates: start: 20071129, end: 20071129
  29. THIOTEPA [Suspect]
     Indication: STEM CELL TRANSPLANT
     Dosage: 120MGM2 PER DAY
     Route: 042
     Dates: start: 20071121, end: 20071122
  30. ZOFRAN [Concomitant]
     Dosage: 2IUAX PER DAY
     Route: 042
     Dates: start: 20071121, end: 20071124
  31. POTASSIUM IODIDE [Concomitant]
     Route: 048
     Dates: end: 20071121
  32. BAKTAR [Concomitant]
     Route: 048
     Dates: start: 20071121, end: 20071122
  33. WATER FOR INJECTIONS [Concomitant]
     Dates: start: 20071129, end: 20071129

REACTIONS (2)
  - STOMATITIS [None]
  - PNEUMONIA CYTOMEGALOVIRAL [None]
